FAERS Safety Report 5030357-2 (Version None)
Quarter: 2006Q2

REPORT INFORMATION
  Report Type: 
  Country: None (occurrence: None)
  Receive Date: 20060615
  Receipt Date: 20060531
  Transmission Date: 20061013
  Serious: Yes (Death, Hospitalization)
  Sender: FDA-Public Use
  Company Number: COT_0560_2006

PATIENT
  Age: 76 Year
  Sex: Female
  Weight: 81.6 kg

DRUGS (13)
  1. VENTAVIS [Suspect]
     Indication: PULMONARY HYPERTENSION
     Dosage: 5 MCG 6TO8X/DAY IH
     Route: 055
     Dates: start: 20050721
  2. KLOR-CON [Concomitant]
  3. ALTACE [Concomitant]
  4. WARFARIN SODIUM [Concomitant]
  5. METOLAZONE [Concomitant]
  6. GLIPIZIDE [Concomitant]
  7. FOLIC ACID [Concomitant]
  8. ALEVE (CAPLET) [Concomitant]
  9. PROPRANOLOL [Concomitant]
  10. SYNTHROID [Concomitant]
  11. ZOCOR [Concomitant]
  12. NORVASC [Concomitant]
  13. OXYGEN [Concomitant]

REACTIONS (8)
  - CONDITION AGGRAVATED [None]
  - JUGULAR VEIN DISTENSION [None]
  - NECK PAIN [None]
  - PULMONARY HYPERTENSION [None]
  - RENAL FAILURE [None]
  - RIGHT VENTRICULAR FAILURE [None]
  - SYNCOPE [None]
  - URINARY TRACT INFECTION [None]
